FAERS Safety Report 18605835 (Version 1)
Quarter: 2020Q4

REPORT INFORMATION
  Report Type: Spontaneous
  Country: FR (occurrence: FR)
  Receive Date: 20201211
  Receipt Date: 20201211
  Transmission Date: 20210114
  Serious: Yes (Hospitalization)
  Sender: FDA-Public Use
  Company Number: FR-TEVA-2020-FR-1856544

PATIENT
  Age: 52 Year
  Sex: Female

DRUGS (11)
  1. LOVENOX [Suspect]
     Active Substance: ENOXAPARIN SODIUM
     Indication: THROMBOSIS PROPHYLAXIS
     Dosage: 4000IU
     Route: 058
     Dates: start: 20201110, end: 20201120
  2. TRAMADOL BASE [Suspect]
     Active Substance: TRAMADOL
     Indication: BACK PAIN
     Dosage: 200MILLIGRAM
     Route: 042
     Dates: start: 20201110, end: 20201115
  3. PARACETAMOL [Suspect]
     Active Substance: ACETAMINOPHEN
     Indication: BACK PAIN
     Dosage: 4GRAM
     Route: 048
     Dates: start: 20201110, end: 20201115
  4. PARACETAMOL [Suspect]
     Active Substance: ACETAMINOPHEN
     Dosage: 2000MILLIGRAM
     Route: 048
     Dates: start: 20201116, end: 20201120
  5. PANTOPRAZOLE [Suspect]
     Active Substance: PANTOPRAZOLE
     Indication: PROPHYLAXIS AGAINST GASTROINTESTINAL ULCER
     Dosage: 20MILLIGRAM
     Route: 048
     Dates: start: 20201110, end: 20201120
  6. ACUPAN [Suspect]
     Active Substance: NEFOPAM HYDROCHLORIDE
     Indication: BACK PAIN
     Dosage: 3DOSAGEFORM
     Route: 042
     Dates: start: 20201110, end: 20201116
  7. IZALGI 500 MG/25 MG, GEULE [Suspect]
     Active Substance: ACETAMINOPHEN\OPIUM
     Indication: BACK PAIN
     Dosage: 1DOSAGEFORM
     Route: 048
     Dates: start: 20201116
  8. DIAZEPAM. [Suspect]
     Active Substance: DIAZEPAM
     Indication: ANXIETY
     Dosage: 15MILLIGRAM
     Route: 048
     Dates: start: 20201110, end: 20201116
  9. KETOPROFENE [Suspect]
     Active Substance: KETOPROFEN
     Dosage: 200MILLIGRAM
     Route: 042
     Dates: start: 20201110, end: 20201114
  10. CONTRAMAL L.P. 150 MG, COMPRIME A LIBERATION PROLONGEE [Suspect]
     Active Substance: TRAMADOL HYDROCHLORIDE
     Indication: BACK PAIN
     Dosage: 2DOSAGEFORM
     Route: 048
     Dates: start: 20201115, end: 20201116
  11. KETOPROFENE [Suspect]
     Active Substance: KETOPROFEN
     Indication: BACK PAIN
     Dosage: 200MILLIGRAM
     Route: 048
     Dates: start: 20201115, end: 20201116

REACTIONS (2)
  - Hepatocellular injury [Recovering/Resolving]
  - Hypertransaminasaemia [Recovering/Resolving]

NARRATIVE: CASE EVENT DATE: 20201117
